FAERS Safety Report 7369982-2 (Version None)
Quarter: 2011Q1

REPORT INFORMATION
  Report Type: 
  Country: None (occurrence: None)
  Receive Date: 20110323
  Receipt Date: 20110309
  Transmission Date: 20110831
  Serious: Yes (Other)
  Sender: FDA-Public Use
  Company Number: PHFR2011IE01832

PATIENT
  Sex: Male

DRUGS (1)
  1. CLOZARIL [Suspect]
     Indication: SCHIZOPHRENIA
     Dosage: 250 MG / NOCTURNAL
     Route: 048
     Dates: start: 20060816

REACTIONS (3)
  - DRUG INTERACTION [None]
  - URINARY RETENTION [None]
  - NEPHRITIS [None]
